FAERS Safety Report 15996625 (Version 1)
Quarter: 2019Q1

REPORT INFORMATION
  Report Type: Spontaneous
  Country: US (occurrence: US)
  Receive Date: 20190222
  Receipt Date: 20190222
  Transmission Date: 20190418
  Serious: No
  Sender: FDA-Public Use
  Company Number: None

PATIENT
  Age: 72 Year
  Sex: Female

DRUGS (2)
  1. EYLEA [Suspect]
     Active Substance: AFLIBERCEPT
     Dates: start: 20190205
  2. EYLEA [Concomitant]
     Active Substance: AFLIBERCEPT
     Dates: start: 20190205

REACTIONS (1)
  - Uveitis [None]

NARRATIVE: CASE EVENT DATE: 20190205
